FAERS Safety Report 13226418 (Version 1)
Quarter: 2017Q1

REPORT INFORMATION
  Report Type: Other
  Country: US (occurrence: US)
  Receive Date: 20170213
  Receipt Date: 20170213
  Transmission Date: 20170428
  Serious: No
  Sender: FDA-Public Use
  Company Number: US-ACORDA-ACO_129444_2016

PATIENT
  Sex: Male

DRUGS (3)
  1. TECFIDERA [Suspect]
     Active Substance: DIMETHYL FUMARATE
     Indication: MULTIPLE SCLEROSIS
     Dosage: 240 MG, BID
     Route: 048
     Dates: start: 20160904
  2. AMPYRA [Suspect]
     Active Substance: DALFAMPRIDINE
     Dosage: 10 UNK, UNK
     Route: 048
     Dates: start: 201610
  3. AMPYRA [Suspect]
     Active Substance: DALFAMPRIDINE
     Indication: MULTIPLE SCLEROSIS
     Dosage: 10 MG, Q 12 HRS
     Route: 048
     Dates: start: 20160831

REACTIONS (8)
  - Laziness [Not Recovered/Not Resolved]
  - Insomnia [Recovering/Resolving]
  - Apathy [Recovering/Resolving]
  - Paraesthesia [Recovering/Resolving]
  - Oscillopsia [Recovering/Resolving]
  - Decreased interest [Not Recovered/Not Resolved]
  - Defaecation urgency [Recovering/Resolving]
  - Hypophagia [Recovering/Resolving]
